FAERS Safety Report 8678032 (Version 8)
Quarter: 2013Q4

REPORT INFORMATION
  Report Type: Report from Study
  Country: CA (occurrence: CA)
  Receive Date: 20120723
  Receipt Date: 20131209
  Transmission Date: 20140711
  Serious: Yes (Hospitalization, Other)
  Sender: FDA-Public Use
  Company Number: CA-ROCHE-1090583

PATIENT
  Age: 47 Year
  Sex: Female
  Weight: 57.6 kg

DRUGS (15)
  1. RITUXAN [Suspect]
     Indication: SJOGREN^S SYNDROME
     Route: 042
     Dates: start: 20110825
  2. PLAQUENIL [Concomitant]
  3. ACTONEL [Concomitant]
  4. REACTINE (CANADA) [Concomitant]
  5. OMNARIS [Concomitant]
  6. CALTRATE [Concomitant]
  7. NEXIUM [Concomitant]
  8. VIMOVO [Concomitant]
  9. TYLENOL [Concomitant]
  10. VENTOLIN [Concomitant]
  11. ADVAIR [Concomitant]
  12. FLOVENT [Concomitant]
  13. DIPHENHYDRAMINE HCL [Concomitant]
     Indication: PREMEDICATION
     Route: 048
     Dates: start: 20110825
  14. ACETAMINOPHEN [Concomitant]
     Indication: PREMEDICATION
     Route: 048
     Dates: start: 20110825
  15. METHYLPREDNISOLONE [Concomitant]
     Indication: PREMEDICATION
     Route: 042
     Dates: start: 20110825

REACTIONS (20)
  - Ocular icterus [Not Recovered/Not Resolved]
  - Breast mass [Not Recovered/Not Resolved]
  - Haemorrhage [Unknown]
  - Sinusitis [Recovered/Resolved]
  - Connective tissue disorder [Unknown]
  - Weight decreased [Not Recovered/Not Resolved]
  - Throat irritation [Unknown]
  - Aphthous stomatitis [Recovered/Resolved]
  - Nausea [Unknown]
  - Off label use [Unknown]
  - Ocular hyperaemia [Recovered/Resolved]
  - Eye swelling [Recovered/Resolved]
  - Oedema peripheral [Not Recovered/Not Resolved]
  - Fatigue [Recovering/Resolving]
  - Pain [Not Recovered/Not Resolved]
  - Cough [Unknown]
  - Dyspnoea [Recovered/Resolved]
  - Chest discomfort [Recovered/Resolved]
  - Dysphonia [Recovered/Resolved]
  - Back pain [Recovering/Resolving]
